FAERS Safety Report 12314957 (Version 3)
Quarter: 2016Q2

REPORT INFORMATION
  Report Type: Report from Study
  Country: US (occurrence: US)
  Receive Date: 20160428
  Receipt Date: 20160624
  Transmission Date: 20160815
  Serious: Yes (Death)
  Sender: FDA-Public Use
  Company Number: US-MALLINCKRODT-T201601368

PATIENT
  Age: 79 Year
  Sex: Male
  Weight: 78 kg

DRUGS (11)
  1. SIMVASTATIN. [Concomitant]
     Active Substance: SIMVASTATIN
     Dosage: UNK
     Route: 048
     Dates: start: 20080624
  2. ALLOPURINOL. [Concomitant]
     Active Substance: ALLOPURINOL
     Dosage: TAKE 0.5 TABLET DAILY
     Route: 048
     Dates: start: 20080624
  3. REPOSITORY CORTICOTROPIN INJECTION [Suspect]
     Active Substance: CORTICOTROPIN
     Indication: SARCOIDOSIS
     Dosage: 80 UNITS TWICE WKLY
     Route: 030
     Dates: start: 20151109, end: 20160310
  4. LISINOPRIL. [Concomitant]
     Active Substance: LISINOPRIL
     Dosage: TAKE 1 TABLET DAILY
     Route: 048
     Dates: start: 20080624
  5. REPOSITORY CORTICOTROPIN INJECTION [Suspect]
     Active Substance: CORTICOTROPIN
     Dosage: 80 UNITS TWICE WKLY FOR 8 WKS
     Route: 058
     Dates: start: 201603
  6. SILDENAFIL. [Concomitant]
     Active Substance: SILDENAFIL
     Dosage: TAKE 2 TABLETS DAILY
     Route: 048
     Dates: start: 20141126
  7. FUROSEMIDE. [Concomitant]
     Active Substance: FUROSEMIDE
     Dosage: TAKE 1 TABLET DAILY
     Dates: start: 20141126
  8. TAMSULOSIN HCL [Concomitant]
     Active Substance: TAMSULOSIN
     Dosage: TAKE 1 CAPSULE DAILY
     Route: 048
     Dates: start: 20141126
  9. VITAMIN D [Concomitant]
     Active Substance: CHOLECALCIFEROL
     Dosage: TAKE 1 TABLET DAILY
     Route: 048
     Dates: start: 20141126
  10. ALLEGRA-D 24 HOUR [Concomitant]
     Active Substance: FEXOFENADINE HYDROCHLORIDE\PSEUDOEPHEDRINE HYDROCHLORIDE
     Dosage: 180-240 MG, TAKE ONE TABLET DAILY
     Route: 048
     Dates: start: 20141126
  11. ASPIRIN ENTERIC COATED K.P. [Concomitant]
     Active Substance: ASPIRIN
     Dosage: ONE TABLET ONCE DAILY
     Route: 048

REACTIONS (4)
  - Myocardial infarction [Fatal]
  - Dyspnoea [Unknown]
  - Cough [Unknown]
  - Wheezing [Unknown]

NARRATIVE: CASE EVENT DATE: 20151202
